FAERS Safety Report 19463302 (Version 1)
Quarter: 2021Q2

REPORT INFORMATION
  Report Type: Spontaneous
  Country: US (occurrence: US)
  Receive Date: 20210625
  Receipt Date: 20210625
  Transmission Date: 20210717
  Serious: Yes (Other)
  Sender: FDA-Public Use
  Company Number: US-TEVA-2021-US-1924712

PATIENT
  Age: 79 Year
  Sex: Male

DRUGS (1)
  1. RANOLAZINE ER [Suspect]
     Active Substance: RANOLAZINE
     Route: 065

REACTIONS (3)
  - Angina pectoris [Unknown]
  - Wrong technique in product usage process [Unknown]
  - Dizziness [Unknown]
